FAERS Safety Report 10600886 (Version 2)
Quarter: 2015Q2

REPORT INFORMATION
  Report Type: Spontaneous
  Country: DE (occurrence: DE)
  Receive Date: 20141124
  Receipt Date: 20150525
  Transmission Date: 20150821
  Serious: Yes (Other)
  Sender: FDA-Public Use
  Company Number: DE-RANBAXY-2014RR-88506

PATIENT
  Age: 1 Day
  Sex: Male
  Weight: 3.1 kg

DRUGS (2)
  1. SERTRALINE [Suspect]
     Active Substance: SERTRALINE HYDROCHLORIDE
     Indication: PRODUCT USED FOR UNKNOWN INDICATION
     Dosage: DURING GESTATIONAL WEEKS 0-38.3
     Route: 064
     Dates: start: 20121224, end: 20130919
  2. LORAZEPAM. [Suspect]
     Active Substance: LORAZEPAM
     Indication: PRODUCT USED FOR UNKNOWN INDICATION
     Dosage: DURING GESTATIONAL WEEKS 0-37.5, HALTED 5 DAYS BEFORE DELIVERY
     Route: 064

REACTIONS (4)
  - Bradycardia neonatal [Recovered/Resolved]
  - Agitation neonatal [Recovered/Resolved]
  - Respiratory disorder neonatal [Recovered/Resolved]
  - Hypotonia neonatal [Recovered/Resolved]

NARRATIVE: CASE EVENT DATE: 20130919
